FAERS Safety Report 5238614-1 (Version None)
Quarter: 2007Q1

REPORT INFORMATION
  Report Type: 
  Country: None (occurrence: None)
  Receive Date: 20070214
  Receipt Date: 20070214
  Transmission Date: 20070707
  Serious: Yes (Hospitalization)
  Sender: FDA-Public Use
  Company Number: None

PATIENT
  Age: 65 Year
  Sex: Male
  Weight: 91.173 kg

DRUGS (2)
  1. BORTEZOMIB 1.3 MG/ M2 [Suspect]
     Indication: MULTIPLE MYELOMA
     Dosage: DAYS 1,4,8,11 OF 21 DAY CYCLE
     Dates: start: 20061113
  2. DOXORUBICIN LIPOSOMAL 30MG/M2 [Suspect]
     Dosage: DAY 4 + 21 OF 21 DAY CYCLE

REACTIONS (1)
  - RENAL FAILURE ACUTE [None]
